FAERS Safety Report 5365702-1 (Version None)
Quarter: 2007Q2

REPORT INFORMATION
  Report Type: 
  Country: None (occurrence: None)
  Receive Date: 20070621
  Receipt Date: 20070615
  Transmission Date: 20071010
  Serious: Yes (Other)
  Sender: FDA-Public Use
  Company Number: JP-BRISTOL-MYERS SQUIBB COMPANY-13821566

PATIENT
  Age: 84 Year
  Sex: Female

DRUGS (10)
  1. GATIFLO TABS 100 MG [Suspect]
     Indication: BRONCHITIS
     Route: 048
     Dates: start: 20070613, end: 20070614
  2. SYMMETREL [Concomitant]
     Route: 048
  3. CIBENOL [Concomitant]
     Route: 048
  4. PLETAL [Concomitant]
     Route: 048
  5. SIGMART [Concomitant]
     Route: 048
  6. ALEVIATIN [Concomitant]
     Route: 048
  7. AMARYL [Concomitant]
     Route: 048
  8. MUCODYNE [Concomitant]
     Route: 048
  9. PROTECADIN [Concomitant]
     Route: 048
  10. HALOPERIDOL [Concomitant]
     Route: 048

REACTIONS (1)
  - HYPOGLYCAEMIC COMA [None]
